FAERS Safety Report 7669528-5 (Version None)
Quarter: 2011Q3

REPORT INFORMATION
  Report Type: 
  Country: None (occurrence: None)
  Receive Date: 20110808
  Receipt Date: 20110728
  Transmission Date: 20111222
  Serious: Yes (Hospitalization)
  Sender: FDA-Public Use
  Company Number: FR-MERCK-1108USA00296

PATIENT
  Age: 44 Year
  Sex: Male
  Weight: 72 kg

DRUGS (11)
  1. ONDANSERTRON HYDROCHLORIDE [Concomitant]
     Route: 065
  2. OXALIPLATIN [Suspect]
     Route: 042
     Dates: start: 20110208, end: 20110208
  3. URBANYL [Concomitant]
     Route: 048
  4. KEPPRA [Suspect]
     Route: 048
     Dates: start: 20101201
  5. ACETAMINOPHEN [Suspect]
     Route: 048
     Dates: start: 20101201, end: 20110224
  6. TRAMADOL HCL [Concomitant]
     Route: 048
  7. EMEND [Suspect]
     Route: 048
     Dates: start: 20110208, end: 20110208
  8. PEMETREXED DISODIUM [Concomitant]
     Route: 065
  9. EMEND [Suspect]
     Route: 048
     Dates: start: 20110209, end: 20110210
  10. METHYLPREDNISOLONE [Concomitant]
     Route: 065
  11. PREDNISOLONE [Concomitant]
     Route: 065

REACTIONS (1)
  - HEPATOCELLULAR INJURY [None]
